FAERS Safety Report 7854354-4 (Version None)
Quarter: 2011Q3

REPORT INFORMATION
  Report Type: 
  Country: None (occurrence: None)
  Receive Date: 20110916
  Receipt Date: 20101028
  Transmission Date: 20111222
  Serious: Yes (Other)
  Sender: FDA-Public Use
  Company Number: 2010SP057675

PATIENT
  Age: 15 Year
  Sex: Female
  Weight: 65.318 kg

DRUGS (1)
  1. IMPLANON [Suspect]
     Indication: CONTRACEPTION
     Dates: start: 20101020

REACTIONS (2)
  - RASH [None]
  - APPLICATION SITE CELLULITIS [None]
